FAERS Safety Report 24288882 (Version 4)
Quarter: 2024Q4

REPORT INFORMATION
  Report Type: Report from Study
  Country: US (occurrence: US)
  Receive Date: 20240906
  Receipt Date: 20241216
  Transmission Date: 20250115
  Serious: Yes (Life-Threatening)
  Sender: TAKEDA
  Company Number: US-TAKEDA-2023TUS042593

PATIENT
  Sex: Female

DRUGS (5)
  1. ECALLANTIDE [Suspect]
     Active Substance: ECALLANTIDE
     Indication: Hereditary angioedema
     Dosage: UNK
  2. ECALLANTIDE [Suspect]
     Active Substance: ECALLANTIDE
     Dosage: 3 DOSAGE FORM
  3. ECALLANTIDE [Suspect]
     Active Substance: ECALLANTIDE
     Dosage: 30 MILLIGRAM
  4. ECALLANTIDE [Suspect]
     Active Substance: ECALLANTIDE
     Dosage: 30 MILLIGRAM
  5. ECALLANTIDE [Suspect]
     Active Substance: ECALLANTIDE
     Dosage: 30 MILLIGRAM

REACTIONS (9)
  - Fear of death [Not Recovered/Not Resolved]
  - Tooth disorder [Not Recovered/Not Resolved]
  - COVID-19 [Not Recovered/Not Resolved]
  - Depressed mood [Not Recovered/Not Resolved]
  - Pharyngitis streptococcal [Unknown]
  - Tooth infection [Unknown]
  - Product use issue [Not Recovered/Not Resolved]
  - Pain [Unknown]
  - Throat irritation [Not Recovered/Not Resolved]
